FAERS Safety Report 12483771 (Version 2)
Quarter: 2016Q3

REPORT INFORMATION
  Report Type: Spontaneous
  Country: US (occurrence: US)
  Receive Date: 20160621
  Receipt Date: 20160727
  Transmission Date: 20161109
  Serious: No
  Sender: FDA-Public Use
  Company Number: US-PFIZER INC-2016258532

PATIENT
  Age: 82 Year
  Sex: Female

DRUGS (2)
  1. XALKORI [Suspect]
     Active Substance: CRIZOTINIB
     Dosage: 250 MG, 1X/DAY
     Dates: start: 20160609, end: 20160612
  2. XALKORI [Suspect]
     Active Substance: CRIZOTINIB
     Indication: LUNG CARCINOMA CELL TYPE UNSPECIFIED STAGE IV
     Dosage: 250 MG, 2X/DAY (250X2=500MG)
     Dates: start: 20160524, end: 20160530

REACTIONS (15)
  - Tongue discomfort [Recovered/Resolved]
  - Chromaturia [Unknown]
  - Eye pruritus [Unknown]
  - Visual field defect [Unknown]
  - Faeces discoloured [Unknown]
  - Eye irritation [Unknown]
  - Oesophagitis [Unknown]
  - Neuropathy peripheral [Unknown]
  - Visual impairment [Unknown]
  - Aura [Unknown]
  - Skin exfoliation [Recovered/Resolved]
  - Migraine [Unknown]
  - Urine output decreased [Unknown]
  - Burning sensation [Recovered/Resolved]
  - Gastritis [Unknown]

NARRATIVE: CASE EVENT DATE: 20160530
